FAERS Safety Report 12786914 (Version 1)
Quarter: 2016Q3

REPORT INFORMATION
  Report Type: Spontaneous
  Country: US (occurrence: US)
  Receive Date: 20160928
  Receipt Date: 20160928
  Transmission Date: 20161109
  Serious: Yes (Other)
  Sender: FDA-Public Use
  Company Number: US-TEVA-694476USA

PATIENT
  Sex: Female
  Weight: 108.8 kg

DRUGS (14)
  1. ZETIA [Concomitant]
     Active Substance: EZETIMIBE
  2. ALBUTEROL. [Suspect]
     Active Substance: ALBUTEROL
     Indication: PRODUCT USED FOR UNKNOWN INDICATION
     Route: 065
  3. GABAPENTIN. [Suspect]
     Active Substance: GABAPENTIN
     Indication: SPINAL COLUMN STENOSIS
     Route: 065
     Dates: start: 201601, end: 201602
  4. GABAPENTIN. [Suspect]
     Active Substance: GABAPENTIN
     Route: 065
     Dates: start: 20160703, end: 201607
  5. EYLEA [Suspect]
     Active Substance: AFLIBERCEPT
     Indication: NEOVASCULAR AGE-RELATED MACULAR DEGENERATION
     Dosage: .2 MILLIGRAM DAILY;
     Route: 031
     Dates: start: 20160524
  6. ZYRTEC [Suspect]
     Active Substance: CETIRIZINE HYDROCHLORIDE
     Dosage: 10 MILLIGRAM DAILY;
  7. LOSARTAN/ HCTZ (HYDROCHLOROTHIAZIDE, LOSARTAN POTASSIUM) [Concomitant]
  8. FLONASE [Suspect]
     Active Substance: FLUTICASONE PROPIONATE
     Route: 045
  9. SPIRIVA RESPIMAT [Suspect]
     Active Substance: TIOTROPIUM BROMIDE
  10. AZELASTINE HYDROCHLORIDE. [Suspect]
     Active Substance: AZELASTINE HYDROCHLORIDE
     Route: 045
  11. MONTELUKAST SODIUM. [Suspect]
     Active Substance: MONTELUKAST SODIUM
     Indication: PRODUCT USED FOR UNKNOWN INDICATION
     Dosage: 10 MILLIGRAM DAILY;
     Route: 065
  12. EYLEA [Suspect]
     Active Substance: AFLIBERCEPT
     Dosage: .2 MILLIGRAM DAILY;
     Route: 031
     Dates: start: 20160719, end: 20160719
  13. SYMBICORT [Suspect]
     Active Substance: BUDESONIDE\FORMOTEROL FUMARATE DIHYDRATE
     Dosage: 20 MICROGRAM DAILY; 160/4.5 MCG 2 INHALATIONS
     Route: 055
  14. EYLEA [Suspect]
     Active Substance: AFLIBERCEPT
     Dosage: .2 MILLIGRAM DAILY;
     Route: 031
     Dates: start: 20160621, end: 20160621

REACTIONS (5)
  - Pulmonary function test decreased [Unknown]
  - Transient ischaemic attack [Recovered/Resolved]
  - Asthma [Unknown]
  - Eosinophil count increased [Unknown]
  - Drug ineffective [Unknown]

NARRATIVE: CASE EVENT DATE: 20160704
